FAERS Safety Report 15549650 (Version 1)
Quarter: 2018Q4

REPORT INFORMATION
  Report Type: Report from Study
  Country: US (occurrence: US)
  Receive Date: 20181025
  Receipt Date: 20181025
  Transmission Date: 20190205
  Serious: Yes (Other)
  Sender: FDA-Public Use
  Company Number: US-CONCORDIA PHARMACEUTICALS INC.-GSH201810-003788

PATIENT
  Age: 62 Year
  Sex: Male

DRUGS (17)
  1. NORCO [Concomitant]
     Active Substance: ACETAMINOPHEN\HYDROCODONE BITARTRATE
  2. LEVOTHYROXINE. [Concomitant]
     Active Substance: LEVOTHYROXINE
  3. KAYEXALATE [Suspect]
     Active Substance: SODIUM POLYSTYRENE SULFONATE
     Indication: BLOOD POTASSIUM INCREASED
     Route: 065
  4. CYMBALTA [Concomitant]
     Active Substance: DULOXETINE HYDROCHLORIDE
  5. VITAMINS NOS [Concomitant]
     Active Substance: VITAMINS
  6. DULOXETINE. [Concomitant]
     Active Substance: DULOXETINE
  7. CABOMETYX [Suspect]
     Active Substance: CABOZANTINIB S-MALATE
     Route: 048
     Dates: end: 201708
  8. ALLOPURINOL. [Concomitant]
     Active Substance: ALLOPURINOL
  9. TAMSULOSIN [Concomitant]
     Active Substance: TAMSULOSIN
  10. CABOMETYX [Suspect]
     Active Substance: CABOZANTINIB S-MALATE
     Route: 048
  11. CABOMETYX [Suspect]
     Active Substance: CABOZANTINIB S-MALATE
     Indication: RENAL CANCER
     Route: 048
     Dates: start: 201705
  12. CABOMETYX [Suspect]
     Active Substance: CABOZANTINIB S-MALATE
     Route: 048
  13. CABOMETYX [Suspect]
     Active Substance: CABOZANTINIB S-MALATE
     Route: 048
  14. COQ10 [Concomitant]
     Active Substance: UBIDECARENONE
  15. L-CARNITINE [Concomitant]
     Active Substance: LEVOCARNITINE
  16. TAURINE [Concomitant]
     Active Substance: TAURINE
  17. CALCIUM [Concomitant]
     Active Substance: CALCIUM

REACTIONS (17)
  - Blood creatinine increased [Unknown]
  - Weight increased [Unknown]
  - Blood potassium decreased [Recovered/Resolved]
  - Haemoglobin abnormal [Unknown]
  - Blood potassium increased [Recovered/Resolved]
  - Weight decreased [Unknown]
  - Immune system disorder [Unknown]
  - Malaise [Unknown]
  - Blood chloride increased [Recovered/Resolved]
  - Retinal haemorrhage [Unknown]
  - Pain [Unknown]
  - Diarrhoea [Unknown]
  - Abdominal pain upper [Unknown]
  - White blood cell count abnormal [Recovered/Resolved]
  - Renal failure [Not Recovered/Not Resolved]
  - Retinal detachment [Recovered/Resolved]
  - Platelet count decreased [Recovered/Resolved]

NARRATIVE: CASE EVENT DATE: 20170809
